FAERS Safety Report 18153065 (Version 4)
Quarter: 2020Q4

REPORT INFORMATION
  Report Type: Other
  Country: US (occurrence: US)
  Receive Date: 20200815
  Receipt Date: 20201005
  Transmission Date: 20210113
  Serious: Yes (Disabling)
  Sender: FDA-Public Use
  Company Number: US-ROCHE-2659826

PATIENT
  Age: 63 Year
  Sex: Male
  Weight: 68.1 kg

DRUGS (5)
  1. VALGANCICLOVIR. [Suspect]
     Active Substance: VALGANCICLOVIR
     Indication: PRODUCT USED FOR UNKNOWN INDICATION
     Dosage: 2 PILLS TWO TIMES A DAY THERAPY
     Route: 065
     Dates: start: 202007
  2. CELLCEPT [Suspect]
     Active Substance: MYCOPHENOLATE MOFETIL\MYCOPHENOLATE MOFETIL HYDROCHLORIDE
     Indication: RENAL TRANSPLANT
     Dosage: 2 PILL TWO TIMES A DAY
     Route: 065
  3. CELLCEPT [Suspect]
     Active Substance: MYCOPHENOLATE MOFETIL\MYCOPHENOLATE MOFETIL HYDROCHLORIDE
     Indication: RENAL TRANSPLANT
     Route: 048
  4. TURMERIC [Concomitant]
     Active Substance: HERBALS\TURMERIC
     Indication: DEPRESSION
     Dosage: 2 IN THE MORNING AND 1 AT NIGHT
  5. TACROLIMUS. [Concomitant]
     Active Substance: TACROLIMUS
     Indication: DEPRESSION
     Dosage: 2 IN THE MORNING AND 1 AT NIGHT

REACTIONS (6)
  - Hip fracture [Not Recovered/Not Resolved]
  - White blood cell count decreased [Unknown]
  - Infection [Unknown]
  - Intentional product use issue [Unknown]
  - Fall [Unknown]
  - Off label use [Unknown]

NARRATIVE: CASE EVENT DATE: 20200703
